FAERS Safety Report 4789573-7 (Version None)
Quarter: 2005Q4

REPORT INFORMATION
  Report Type: 
  Country: None (occurrence: None)
  Receive Date: 20051005
  Receipt Date: 20051005
  Transmission Date: 20060501
  Serious: Yes (Hospitalization)
  Sender: FDA-Public Use
  Company Number: None

PATIENT
  Age: 65 Year
  Sex: Male
  Weight: 80 kg

DRUGS (15)
  1. BACTRIM DS [Suspect]
     Indication: SINUSITIS
     Dosage: 1 DS TAB BID
  2. CYA [Concomitant]
  3. MYCOPHENOLATE [Concomitant]
  4. PREDNISONE [Concomitant]
  5. ASPIRIN [Concomitant]
  6. LABETALOL [Concomitant]
  7. LOSARTAN POTASSIUM [Concomitant]
  8. PRAVASTATIN [Concomitant]
  9. TAMSULOSIN [Concomitant]
  10. FINASTERIDE [Concomitant]
  11. SERTRALINE HCL [Concomitant]
  12. REPAGLINIDE [Concomitant]
  13. PANTOPRAZOLE [Concomitant]
  14. RANITIDINE [Concomitant]
  15. LEVOFLOXACIN [Concomitant]

REACTIONS (1)
  - BLOOD CREATININE INCREASED [None]
